FAERS Safety Report 24997060 (Version 1)
Quarter: 2025Q1

REPORT INFORMATION
  Report Type: Spontaneous
  Country: GB (occurrence: GB)
  Receive Date: 20250221
  Receipt Date: 20250221
  Transmission Date: 20250409
  Serious: Yes (Other)
  Sender: MERCK SHARP & DOHME LLC
  Company Number: GB-009507513-2255984

PATIENT
  Sex: Female

DRUGS (1)
  1. KEYTRUDA [Suspect]
     Active Substance: PEMBROLIZUMAB
     Indication: Triple negative breast cancer

REACTIONS (4)
  - Blindness [Unknown]
  - Deafness [Unknown]
  - Malignant neoplasm progression [Unknown]
  - Vasculitis [Unknown]

NARRATIVE: CASE EVENT DATE: 20250201
